FAERS Safety Report 16530661 (Version 2)
Quarter: 2019Q3

REPORT INFORMATION
  Report Type: Spontaneous
  Country: DE (occurrence: DE)
  Receive Date: 20190704
  Receipt Date: 20190711
  Transmission Date: 20191004
  Serious: Yes (Hospitalization, Congenital Anomaly, Other)
  Sender: FDA-Public Use
  Company Number: DE-AUROBINDO-AUR-APL-2017-13878

PATIENT

DRUGS (4)
  1. LEVETIRACETAM. [Suspect]
     Active Substance: LEVETIRACETAM
     Indication: EPILEPSY
     Dosage: 2250 (1000-250-1000) MG, DAILY
     Route: 064
     Dates: start: 2008
  2. ROPIVACAINE. [Concomitant]
     Active Substance: ROPIVACAINE HYDROCHLORIDE
     Indication: PAIN
     Dosage: UNK,MATERNAL DOSE: UKN, AT 37+3 GW
     Route: 064
     Dates: start: 200810
  3. SUFENTANIL [Concomitant]
     Active Substance: SUFENTANIL
     Indication: PAIN
     Dosage: UNK,MATERNAL DOSE: UKN, AT 37+3 GW
     Route: 064
     Dates: start: 20081020, end: 20081020
  4. LAMOTRIGINE. [Suspect]
     Active Substance: LAMOTRIGINE
     Indication: EPILEPSY
     Dosage: 400 MILLIGRAM, ONCE A DAY, 400 MG (200-0-200) MG
     Route: 064
     Dates: start: 2008

REACTIONS (6)
  - Portal vein thrombosis [Recovered/Resolved]
  - Selective eating disorder [Recovered/Resolved]
  - Infantile apnoea [Recovered/Resolved]
  - Foetal exposure during pregnancy [Recovered/Resolved]
  - Patent ductus arteriosus [Recovered/Resolved]
  - Agitation neonatal [Recovered/Resolved]

NARRATIVE: CASE EVENT DATE: 20081002
